FAERS Safety Report 22220270 (Version 2)
Quarter: 2023Q2

REPORT INFORMATION
  Report Type: Report from Study
  Country: US (occurrence: US)
  Receive Date: 20230417
  Receipt Date: 20230517
  Transmission Date: 20230722
  Serious: Yes (Hospitalization, Other)
  Sender: FDA-Public Use
  Company Number: US-BAUSCH-BL-2023-005902

PATIENT
  Age: 56 Year
  Sex: Male

DRUGS (1)
  1. XIFAXAN [Suspect]
     Active Substance: RIFAXIMIN
     Indication: Product used for unknown indication
     Route: 048

REACTIONS (3)
  - Arthritis infective [Unknown]
  - Neoplasm malignant [Not Recovered/Not Resolved]
  - Hip arthroplasty [Unknown]
